FAERS Safety Report 4487609-4 (Version None)
Quarter: 2004Q4

REPORT INFORMATION
  Report Type: 
  Country: None (occurrence: None)
  Receive Date: 20041027
  Receipt Date: 20041027
  Transmission Date: 20050328
  Serious: Yes (Hospitalization)
  Sender: FDA-Public Use
  Company Number: None

PATIENT
  Age: 43 Year
  Sex: Female
  Weight: 72.5755 kg

DRUGS (2)
  1. TIAGABINE   4 MG   CEPHALON [Suspect]
     Indication: ANXIETY
     Dosage: 8 MG   TWICE A DAY   ORAL
     Route: 048
     Dates: start: 20040901, end: 20040908
  2. EFFEXOR XR [Concomitant]

REACTIONS (1)
  - PARTIAL SEIZURES [None]
